FAERS Safety Report 10071159 (Version 1)
Quarter: 2014Q2

REPORT INFORMATION
  Report Type: Spontaneous
  Country: US (occurrence: US)
  Receive Date: 20140410
  Receipt Date: 20140410
  Transmission Date: 20141212
  Serious: Yes (Death)
  Sender: FDA-Public Use
  Company Number: US-AMGEN INC.-USASP2014024627

PATIENT
  Age: 57 Year
  Sex: Female

DRUGS (12)
  1. NEUPOGEN [Suspect]
     Indication: PRODUCT USED FOR UNKNOWN INDICATION
     Dosage: 300 MG, UNK
     Route: 058
     Dates: start: 20111012
  2. HERCEPTIN [Suspect]
     Indication: PRODUCT USED FOR UNKNOWN INDICATION
     Dosage: UNK
     Route: 042
  3. XGEVA [Concomitant]
     Dosage: UNK
  4. NAVELBINE [Concomitant]
     Dosage: 43 MG, UNK
  5. DECADRON                           /00016001/ [Concomitant]
     Dosage: 8 MG, UNK
  6. ZOFRAN                             /00955301/ [Concomitant]
     Dosage: 16 MG, UNK
  7. CARBOPLATIN [Concomitant]
     Dosage: 230 MG, UNK
  8. GEMZAR [Concomitant]
     Dosage: UNK
  9. ABRAXANE                           /01116004/ [Concomitant]
     Dosage: 160 MG, UNK
  10. DENOSUMAB [Concomitant]
     Dosage: 120 MG, UNK
  11. HEPARIN [Concomitant]
     Dosage: UNK
  12. ALOXI [Concomitant]
     Dosage: UNK

REACTIONS (1)
  - Death [Fatal]
